FAERS Safety Report 10494267 (Version 2)
Quarter: 2014Q4

REPORT INFORMATION
  Report Type: Spontaneous
  Country: CA (occurrence: CA)
  Receive Date: 20141003
  Receipt Date: 20141015
  Transmission Date: 20150528
  Serious: Yes (Death, Other)
  Sender: FDA-Public Use
  Company Number: CA-GLAXOSMITHKLINE-A1090757A

PATIENT
  Age: 52 Year
  Sex: Female
  Weight: 69 kg

DRUGS (14)
  1. HYDROCHLOROTHIAZIDE. [Concomitant]
     Active Substance: HYDROCHLOROTHIAZIDE
  2. REVOLADE [Suspect]
     Active Substance: ELTROMBOPAG
     Indication: THROMBOCYTOPENIA
  3. OXAZEPAM. [Concomitant]
     Active Substance: OXAZEPAM
  4. M-ESLON [Concomitant]
     Active Substance: MORPHINE SULFATE
  5. RABEPRAZOLE [Concomitant]
     Active Substance: RABEPRAZOLE
  6. REVOLADE [Suspect]
     Active Substance: ELTROMBOPAG
     Indication: HEPATITIS C
     Dosage: 25 MG, QD
     Route: 048
     Dates: start: 20140627, end: 20140912
  7. REVOLADE [Suspect]
     Active Substance: ELTROMBOPAG
     Indication: HEPATIC CIRRHOSIS
  8. PEGATRON [Concomitant]
     Active Substance: PEGINTERFERON ALFA-2B\RIBAVIRIN
  9. ELAVIL (NOS) [Concomitant]
  10. RAMIPRIL. [Concomitant]
     Active Substance: RAMIPRIL
  11. RIBAVIRIN. [Concomitant]
     Active Substance: RIBAVIRIN
  12. HYDROXYZINE [Concomitant]
     Active Substance: HYDROXYZINE\HYDROXYZINE HYDROCHLORIDE
  13. EPOETIN ALFA [Concomitant]
     Active Substance: ERYTHROPOIETIN
  14. MORPHINE [Concomitant]
     Active Substance: MORPHINE

REACTIONS (1)
  - Sudden death [Fatal]

NARRATIVE: CASE EVENT DATE: 20140913
